FAERS Safety Report 10583233 (Version 2)
Quarter: 2015Q1

REPORT INFORMATION
  Report Type: Report from Study
  Country: US (occurrence: US)
  Receive Date: 20141114
  Receipt Date: 20150320
  Transmission Date: 20150720
  Serious: Yes (Hospitalization)
  Sender: FDA-Public Use
  Company Number: US-TARO-2014TAR00538

PATIENT
  Age: 70 Year
  Sex: Male
  Weight: 140.59 kg

DRUGS (1)
  1. ALDARA [Suspect]
     Active Substance: IMIQUIMOD
     Dosage: 1 APPLICATION, 1X/DAY
     Route: 061
     Dates: start: 20140225, end: 20140613

REACTIONS (2)
  - Arthroscopy [Recovered/Resolved]
  - Meniscus injury [None]

NARRATIVE: CASE EVENT DATE: 20140701
